FAERS Safety Report 7518447-3 (Version None)
Quarter: 2011Q2

REPORT INFORMATION
  Report Type: 
  Country: None (occurrence: None)
  Receive Date: 20110602
  Receipt Date: 20110525
  Transmission Date: 20111010
  Serious: No
  Sender: FDA-Public Use
  Company Number: KR-JNJFOC-20110511700

PATIENT
  Sex: Male

DRUGS (2)
  1. ORAL ANALGESICS [Concomitant]
     Route: 048
  2. DURAGESIC-100 [Suspect]
     Indication: PAIN MANAGEMENT
     Route: 062
     Dates: start: 20110525, end: 20110525

REACTIONS (1)
  - INCORRECT DRUG ADMINISTRATION DURATION [None]
